FAERS Safety Report 21047851 (Version 1)
Quarter: 2022Q3

REPORT INFORMATION
  Report Type: Spontaneous
  Country: US (occurrence: US)
  Receive Date: 20220706
  Receipt Date: 20220706
  Transmission Date: 20221027
  Serious: Yes (Other)
  Sender: FDA-Public Use
  Company Number: US-ELI_LILLY_AND_COMPANY-US202206012143

PATIENT
  Age: 74 Year
  Sex: Male
  Weight: 133.8 kg

DRUGS (1)
  1. BEBTELOVIMAB [Suspect]
     Active Substance: BEBTELOVIMAB
     Indication: COVID-19
     Dosage: 175 MG, SINGLE
     Route: 042
     Dates: start: 20220620, end: 20220620

REACTIONS (6)
  - Dysstasia [Unknown]
  - Balance disorder [Unknown]
  - Amnesia [Unknown]
  - Frequent bowel movements [Unknown]
  - Chills [Recovered/Resolved]
  - Vomiting [Unknown]

NARRATIVE: CASE EVENT DATE: 20220620
